FAERS Safety Report 18767956 (Version 3)
Quarter: 2021Q1

REPORT INFORMATION
  Report Type: Spontaneous
  Country: US (occurrence: US)
  Receive Date: 20210121
  Receipt Date: 20210205
  Transmission Date: 20210419
  Serious: Yes (Other)
  Sender: FDA-Public Use
  Company Number: US-PFIZER INC-2021039812

PATIENT
  Age: 57 Year
  Sex: Female

DRUGS (1)
  1. XELJANZ XR [Suspect]
     Active Substance: TOFACITINIB CITRATE
     Dosage: 11 MG

REACTIONS (16)
  - Ligament disorder [Unknown]
  - Arthritis [Unknown]
  - Haemorrhage [Unknown]
  - Wrist fracture [Recovering/Resolving]
  - Headache [Recovered/Resolved]
  - Lung disorder [Unknown]
  - Illness [Unknown]
  - Blindness [Unknown]
  - Diabetes mellitus [Unknown]
  - Pain [Unknown]
  - Gait inability [Unknown]
  - Limb discomfort [Unknown]
  - Mental impairment [Unknown]
  - Therapeutic response unexpected [Unknown]
  - Polyp [Unknown]
  - Alopecia [Unknown]
